FAERS Safety Report 9985438 (Version 3)
Quarter: 2015Q1

REPORT INFORMATION
  Report Type: Report from Study
  Country: US (occurrence: US)
  Receive Date: 20140307
  Receipt Date: 20150226
  Transmission Date: 20150721
  Serious: Yes (Other)
  Sender: FDA-Public Use
  Company Number: US-ALEXION-A201305151

PATIENT
  Age: 79 Year
  Sex: Male

DRUGS (1)
  1. SOLIRIS [Suspect]
     Active Substance: ECULIZUMAB
     Indication: PAROXYSMAL NOCTURNAL HAEMOGLOBINURIA
     Dosage: 900 MG, Q2W
     Route: 042
     Dates: start: 20120911

REACTIONS (3)
  - Haemoglobin decreased [Not Recovered/Not Resolved]
  - Aplastic anaemia [Unknown]
  - Insomnia [Unknown]

NARRATIVE: CASE EVENT DATE: 20141216
